FAERS Safety Report 17333066 (Version 1)
Quarter: 2020Q1

REPORT INFORMATION
  Report Type: Spontaneous
  Country: CA (occurrence: CA)
  Receive Date: 20200128
  Receipt Date: 20200128
  Transmission Date: 20200409
  Serious: No
  Sender: FDA-Public Use
  Company Number: CA-ALKEM LABORATORIES LIMITED-CA-ALKEM-2019-10156

PATIENT
  Age: 7 Year
  Sex: Female

DRUGS (1)
  1. METHYLPHENIDATE HYDROCHLORIDE. [Suspect]
     Active Substance: METHYLPHENIDATE HYDROCHLORIDE
     Indication: ATTENTION DEFICIT/HYPERACTIVITY DISORDER
     Dosage: 10 MILLIGRAM, QD
     Route: 048
     Dates: start: 200110

REACTIONS (6)
  - Drug interaction [Unknown]
  - Dry skin [Unknown]
  - Rash [Unknown]
  - Tic [Recovering/Resolving]
  - Movement disorder [Recovering/Resolving]
  - Nightmare [Unknown]
